FAERS Safety Report 4782522-7 (Version None)
Quarter: 2005Q3

REPORT INFORMATION
  Report Type: 
  Country: None (occurrence: None)
  Receive Date: 20050929
  Receipt Date: 20050215
  Transmission Date: 20060218
  Serious: No
  Sender: FDA-Public Use
  Company Number: 400427

PATIENT
  Sex: Male

DRUGS (5)
  1. COREG [Suspect]
     Dosage: 3.125MG TWICE PER DAY
     Route: 048
     Dates: start: 20050203
  2. VERAPAMIL [Concomitant]
  3. DIGOXIN [Concomitant]
  4. HYDROCHLOROTHIAZIDE [Concomitant]
  5. LISINOPRIL [Concomitant]

REACTIONS (2)
  - DRUG INEFFECTIVE [None]
  - HEART RATE DECREASED [None]
